FAERS Safety Report 7927534-7 (Version None)
Quarter: 2011Q4

REPORT INFORMATION
  Report Type: 
  Country: None (occurrence: None)
  Receive Date: 20111118
  Receipt Date: 20111114
  Transmission Date: 20120403
  Serious: Yes (Other)
  Sender: FDA-Public Use
  Company Number: FR-ROCHE-1012507

PATIENT
  Age: 30 Year
  Sex: Male

DRUGS (2)
  1. RIBAVIRIN [Concomitant]
     Route: 048
     Dates: start: 20091201
  2. PEGINTERFERON ALFA-2A [Suspect]
     Indication: HEPATITIS C
     Route: 058
     Dates: start: 20091201

REACTIONS (1)
  - LIPOGRANULOMA [None]
